FAERS Safety Report 8805265 (Version 1)
Quarter: 2012Q4

REPORT INFORMATION
  Report Type: Spontaneous
  Country: US (occurrence: None)
  Receive Date: 20120918
  Receipt Date: 20120918
  Transmission Date: 20130627
  Serious: Yes (Hospitalization)
  Sender: FDA-Public Use
  Company Number: None

PATIENT
  Age: 59 Year
  Sex: Male
  Weight: 69.2 kg

DRUGS (2)
  1. HALOPERIDOL [Suspect]
     Indication: SCHIZOAFFECTIVE DISORDER
     Route: 058
  2. OLANZAPINE [Suspect]
     Indication: SCHIZOAFFECTIVE DISORDER
     Route: 048

REACTIONS (3)
  - Mental status changes [None]
  - Weight decreased [None]
  - Hyperglycaemia [None]
